FAERS Safety Report 12261307 (Version 2)
Quarter: 2016Q2

REPORT INFORMATION
  Report Type: Spontaneous
  Country: JP (occurrence: JP)
  Receive Date: 20160412
  Receipt Date: 20160601
  Transmission Date: 20160815
  Serious: Yes (Death, Other)
  Sender: FDA-Public Use
  Company Number: JP-PFIZER INC-2016208682

PATIENT
  Sex: Male
  Weight: 56.5 kg

DRUGS (1)
  1. REVATIO [Suspect]
     Active Substance: SILDENAFIL CITRATE
     Indication: PULMONARY HYPERTENSION
     Route: 048

REACTIONS (8)
  - Pulmonary hypertension [Fatal]
  - Anaemia [Unknown]
  - Gastrointestinal haemorrhage [Fatal]
  - Circulatory collapse [Fatal]
  - Scleroderma [Fatal]
  - Melaena [Fatal]
  - Condition aggravated [Fatal]
  - Brain natriuretic peptide increased [Unknown]
